FAERS Safety Report 23097750 (Version 2)
Quarter: 2023Q4

REPORT INFORMATION
  Report Type: Other
  Country: US (occurrence: None)
  Receive Date: 20231023
  Receipt Date: 20231031
  Transmission Date: 20240110
  Serious: Yes (Other)
  Sender: FDA-Public Use
  Company Number: US-ROCHE-3441971

PATIENT
  Age: 76 Year
  Sex: Female
  Weight: 56.296 kg

DRUGS (3)
  1. OCREVUS [Suspect]
     Active Substance: OCRELIZUMAB
     Indication: Relapsing-remitting multiple sclerosis
     Dosage: INFUSE 300MG INTRAVENOUSLY, REPEAT IN 2 WEEKS, THEN INFUSE 600MG EVERY 6 MONTHS
     Route: 042
     Dates: start: 20220711
  2. OCREVUS [Suspect]
     Active Substance: OCRELIZUMAB
     Dosage: YES
     Route: 042
     Dates: start: 20230109
  3. OCREVUS [Suspect]
     Active Substance: OCRELIZUMAB
     Route: 042
     Dates: start: 20230725

REACTIONS (2)
  - Amnesia [Not Recovered/Not Resolved]
  - Urinary tract infection [Recovered/Resolved]
